FAERS Safety Report 18717493 (Version 1)
Quarter: 2021Q1

REPORT INFORMATION
  Report Type: Spontaneous
  Country: FR (occurrence: FR)
  Receive Date: 20210108
  Receipt Date: 20210108
  Transmission Date: 20210419
  Serious: Yes (Other)
  Sender: FDA-Public Use
  Company Number: FR-PFIZER INC-2021004133

PATIENT
  Age: 40 Year
  Sex: Male
  Weight: 61 kg

DRUGS (16)
  1. ROCURONIUM BROMIDE. [Suspect]
     Active Substance: ROCURONIUM BROMIDE
     Indication: SEDATION
     Dates: start: 20191101, end: 20191101
  2. ETOMIDATE LIPURO [Suspect]
     Active Substance: ETOMIDATE
     Indication: SEDATION
     Dates: start: 20191101, end: 20191101
  3. PROPOFOL. [Suspect]
     Active Substance: PROPOFOL
     Indication: SEDATION
     Dosage: 50 MG, 1X/DAY
     Route: 042
     Dates: start: 20191101, end: 20191101
  4. ZOPICLONE [Concomitant]
     Active Substance: ZOPICLONE
  5. ISOFUNDINE [Suspect]
     Active Substance: CALCIUM CHLORIDE\MAGNESIUM CHLORIDE\MALIC ACID\POTASSIUM CHLORIDE\SODIUM ACETATE\SODIUM CHLORIDE
     Indication: BLOOD VOLUME EXPANSION
     Route: 042
     Dates: start: 20191101, end: 20191101
  6. SUFENTANIL [Suspect]
     Active Substance: SUFENTANIL
     Indication: SEDATION
     Dosage: 32 UG, 1X/DAY
     Route: 042
     Dates: start: 20191101, end: 20191101
  7. AUGMENTIN [Suspect]
     Active Substance: AMOXICILLIN\CLAVULANATE POTASSIUM
     Indication: ANTIBIOTIC PROPHYLAXIS
     Dosage: 2 G, 1X/DAY
     Route: 042
     Dates: start: 20191101, end: 20191101
  8. LEPTICUR [Concomitant]
     Active Substance: TROPATEPINE HYDROCHLORIDE
  9. PAROXETINE. [Concomitant]
     Active Substance: PAROXETINE
  10. CELOCURINE [SUXAMETHONIUM IODIDE] [Suspect]
     Active Substance: SUCCINYLCHOLINE IODIDE
     Indication: SEDATION
     Dates: start: 20191101, end: 20191101
  11. KETAMINE [Suspect]
     Active Substance: KETAMINE
     Indication: SEDATION
     Dates: start: 20191101, end: 20191101
  12. EXACYL [Suspect]
     Active Substance: TRANEXAMIC ACID
     Indication: PROCEDURAL HAEMORRHAGE
     Route: 042
     Dates: start: 20191101, end: 20191101
  13. ACUPAN [Suspect]
     Active Substance: NEFOPAM HYDROCHLORIDE
     Indication: PAIN
     Route: 042
     Dates: start: 20191101, end: 20191101
  14. PARACETAMOL [Suspect]
     Active Substance: ACETAMINOPHEN
     Indication: PAIN
     Route: 042
     Dates: start: 20191101, end: 20191101
  15. LOXAPAC [LOXAPINE SUCCINATE] [Concomitant]
     Active Substance: LOXAPINE SUCCINATE
  16. DIAZEPAM. [Concomitant]
     Active Substance: DIAZEPAM

REACTIONS (4)
  - Anaphylactic shock [Recovered/Resolved]
  - Anaphylactoid reaction [Recovered/Resolved]
  - Hypotension [Recovered/Resolved]
  - Urticaria [Recovered/Resolved]

NARRATIVE: CASE EVENT DATE: 20191101
